FAERS Safety Report 12936692 (Version 2)
Quarter: 2017Q1

REPORT INFORMATION
  Report Type: Spontaneous
  Country: JP (occurrence: JP)
  Receive Date: 20161114
  Receipt Date: 20170203
  Transmission Date: 20170428
  Serious: Yes (Hospitalization, Other)
  Sender: FDA-Public Use
  Company Number: JP-GLAXOSMITHKLINE-JP2016JPN163961

PATIENT
  Age: 69 Year
  Sex: Female

DRUGS (3)
  1. RELENZA [Suspect]
     Active Substance: ZANAMIVIR
     Indication: INFLUENZA
     Dosage: 10 MG, BID
     Route: 055
     Dates: start: 20160204, end: 20160208
  2. MAOUTOU [Concomitant]
     Indication: INFLUENZA
     Dosage: UNK
     Dates: start: 20160204, end: 20160208
  3. CALONAL [Concomitant]
     Active Substance: ACETAMINOPHEN
     Indication: PYREXIA
     Dosage: UNK UNK, PRN
     Dates: start: 20160204

REACTIONS (7)
  - Polyuria [Recovering/Resolving]
  - Vomiting [Recovering/Resolving]
  - Malaise [Recovering/Resolving]
  - Hypernatraemia [Recovering/Resolving]
  - Polydipsia [Recovering/Resolving]
  - Nausea [Recovering/Resolving]
  - Nephrogenic diabetes insipidus [Recovering/Resolving]

NARRATIVE: CASE EVENT DATE: 201602
